FAERS Safety Report 25263561 (Version 1)
Quarter: 2025Q2

REPORT INFORMATION
  Report Type: Report from Study
  Country: US (occurrence: US)
  Receive Date: 20250502
  Receipt Date: 20250502
  Transmission Date: 20250717
  Serious: Yes (Death)
  Sender: RECORDATI
  Company Number: US-RECORDATI RARE DISEASE INC.-2025002971

PATIENT
  Age: 69 Year
  Sex: Female
  Weight: 83.9 kg

DRUGS (12)
  1. ISTURISA [Suspect]
     Active Substance: OSILODROSTAT PHOSPHATE
     Indication: Pituitary-dependent Cushing^s syndrome
     Dosage: 1 MG, BID
     Route: 048
     Dates: start: 202405, end: 20250423
  2. ATORVASTATIN CALCIUM [Concomitant]
     Active Substance: ATORVASTATIN CALCIUM
     Indication: Product used for unknown indication
     Dosage: 80 MILLIGRAM, QD (TABLET 80)
     Route: 048
     Dates: start: 20240522
  3. CELEXA [Concomitant]
     Active Substance: CITALOPRAM HYDROBROMIDE
     Indication: Product used for unknown indication
     Dosage: 20 MILLIGRAM, QD (TABLET)
     Route: 048
     Dates: start: 20240522
  4. EZETIMIBE [Concomitant]
     Active Substance: EZETIMIBE
     Indication: Product used for unknown indication
     Dosage: 10 MILLIGRAM, QD, TABLET
     Route: 048
     Dates: start: 20241111
  5. LABETALOL HYDROCHLORIDE [Concomitant]
     Active Substance: LABETALOL HYDROCHLORIDE
     Indication: Product used for unknown indication
     Dosage: 100 MILLIGRAM, BID (TABLET)
     Route: 048
     Dates: start: 20240522
  6. LANTUS [Concomitant]
     Active Substance: INSULIN GLARGINE
     Indication: Product used for unknown indication
     Dosage: 100 UNITS/ML , QD (QAM), SUBCUTANEOUS SOLUTION 100 UNITS
     Route: 058
     Dates: start: 20240522
  7. LISINOPRIL [Concomitant]
     Active Substance: LISINOPRIL
     Indication: Product used for unknown indication
     Dosage: 20 MILLIGRAM, QD (TABLET)
     Route: 048
     Dates: start: 20240522
  8. MAGNESIUM CHLORIDE [Concomitant]
     Active Substance: MAGNESIUM CHLORIDE
     Indication: Product used for unknown indication
     Dosage: 64 MILLIGRAM, QD (TABLET)
     Route: 048
     Dates: start: 20240522
  9. NOVOLOG [Concomitant]
     Active Substance: INSULIN ASPART
     Indication: Product used for unknown indication
     Dosage: 100 UNIT/ML , TID (INJECTION SOLUTION) AFTER MEALS
     Route: 048
     Dates: start: 20240522
  10. PANTOPRAZOLE SODIUM [Concomitant]
     Active Substance: PANTOPRAZOLE SODIUM
     Indication: Product used for unknown indication
     Dosage: 40 MILLIGRAM, QD (TABET DELAYED)
     Route: 048
     Dates: start: 20240522
  11. PLAVIX [Concomitant]
     Active Substance: CLOPIDOGREL BISULFATE
     Indication: Product used for unknown indication
     Dosage: 75 MILLIGRAM, QD (TABLET)
     Route: 048
     Dates: start: 20240522
  12. SYNTHROID [Concomitant]
     Active Substance: LEVOTHYROXINE SODIUM
     Indication: Product used for unknown indication
     Dosage: 50 MICROGRAM, QD (TABLET)
     Route: 048
     Dates: start: 20240522

REACTIONS (1)
  - Myocardial infarction [Fatal]

NARRATIVE: CASE EVENT DATE: 20250401
